FAERS Safety Report 14211542 (Version 1)
Quarter: 2017Q4

REPORT INFORMATION
  Report Type: Spontaneous
  Country: US (occurrence: None)
  Receive Date: 20171121
  Receipt Date: 20171121
  Transmission Date: 20180321
  Serious: Yes (Other)
  Sender: FDA-Public Use
  Company Number: None

PATIENT
  Age: 44 Year
  Sex: Female

DRUGS (7)
  1. VITAMIN D [Concomitant]
     Active Substance: CHOLECALCIFEROL
  2. FISH OIL [Concomitant]
     Active Substance: FISH OIL
  3. IBRANCE [Suspect]
     Active Substance: PALBOCICLIB
     Indication: NEOPLASM MALIGNANT
     Route: 048
     Dates: start: 20171005
  4. GABAPENTIN. [Concomitant]
     Active Substance: GABAPENTIN
  5. VITAMIN E [Concomitant]
     Active Substance: .ALPHA.-TOCOPHEROL
  6. COQ10 [Concomitant]
     Active Substance: UBIDECARENONE
  7. LETROZOLE. [Concomitant]
     Active Substance: LETROZOLE

REACTIONS (3)
  - White blood cell count decreased [None]
  - Therapy change [None]
  - Platelet count decreased [None]

NARRATIVE: CASE EVENT DATE: 2017
